FAERS Safety Report 8723476 (Version 2)
Quarter: 2018Q4

REPORT INFORMATION
  Report Type: Spontaneous
  Country: GB (occurrence: GB)
  Receive Date: 20120814
  Receipt Date: 20181224
  Transmission Date: 20190205
  Serious: Yes (Hospitalization)
  Sender: FDA-Public Use
  Company Number: PHHY2012GB068647

PATIENT
  Age: 83 Year
  Sex: Male

DRUGS (8)
  1. FOLIC ACID. [Concomitant]
     Active Substance: FOLIC ACID
     Indication: PRODUCT USED FOR UNKNOWN INDICATION
     Dosage: UNK
     Route: 065
  2. OLMESARTAN [Concomitant]
     Active Substance: OLMESARTAN
     Indication: HYPERTENSION
     Dosage: UNK
     Route: 065
  3. LERCANIDIPINE [Concomitant]
     Active Substance: LERCANIDIPINE
     Indication: HYPERTENSION
     Dosage: UNK
     Route: 065
  4. OMEPRAZOLE. [Concomitant]
     Active Substance: OMEPRAZOLE
     Indication: PRODUCT USED FOR UNKNOWN INDICATION
     Dosage: UNK
     Route: 065
  5. ALFUZOSIN [Concomitant]
     Active Substance: ALFUZOSIN
     Indication: BENIGN PROSTATIC HYPERPLASIA
     Dosage: UNK
     Route: 065
  6. METHOTREXATE. [Suspect]
     Active Substance: METHOTREXATE
     Indication: RHEUMATOID ARTHRITIS
     Dosage: 20 MG, UNK
     Route: 065
  7. ASPIRIN YUNGJIN [Concomitant]
     Indication: PRODUCT USED FOR UNKNOWN INDICATION
     Dosage: UNK
     Route: 065
  8. SIMVASTATIN. [Concomitant]
     Active Substance: SIMVASTATIN
     Indication: PRODUCT USED FOR UNKNOWN INDICATION
     Dosage: UNK
     Route: 065

REACTIONS (19)
  - Decreased appetite [Recovered/Resolved]
  - Muscular weakness [Recovered/Resolved]
  - Lethargy [Recovered/Resolved]
  - Anaemia [Recovered/Resolved]
  - Multiple fractures [Recovered/Resolved]
  - Blood alkaline phosphatase increased [Recovered/Resolved]
  - Paraesthesia [Recovered/Resolved]
  - Lymphopenia [Recovered/Resolved]
  - Blood parathyroid hormone decreased [Recovered/Resolved]
  - Constipation [Recovered/Resolved]
  - Pelvic pain [Recovered/Resolved]
  - Lymphadenopathy [Recovered/Resolved]
  - Lymphoproliferative disorder [Recovered/Resolved]
  - Pleural effusion [Recovered/Resolved]
  - Spinal column stenosis [Recovered/Resolved]
  - Weight decreased [Recovered/Resolved]
  - Hypercalcaemia [Recovered/Resolved]
  - Normocytic anaemia [Recovered/Resolved]
  - Soft tissue mass [Recovered/Resolved]
